FAERS Safety Report 6040068-2 (Version None)
Quarter: 2009Q1

REPORT INFORMATION
  Report Type: 
  Country: None (occurrence: None)
  Receive Date: 20090116
  Receipt Date: 20071204
  Transmission Date: 20090719
  Serious: No
  Sender: FDA-Public Use
  Company Number: US-BRISTOL-MYERS SQUIBB COMPANY-14002695

PATIENT
  Age: 40 Year
  Sex: Male
  Weight: 93 kg

DRUGS (2)
  1. ABILIFY [Suspect]
     Indication: SCHIZOPHRENIA
     Dosage: DURATION: 6-8MONTHS.
     Route: 048
  2. HALDOL [Concomitant]

REACTIONS (1)
  - WEIGHT INCREASED [None]
